FAERS Safety Report 12531228 (Version 2)
Quarter: 2016Q3

REPORT INFORMATION
  Report Type: Spontaneous
  Country: IT (occurrence: FR)
  Receive Date: 20160706
  Receipt Date: 20160711
  Transmission Date: 20161109
  Serious: Yes (Hospitalization, Other)
  Sender: FDA-Public Use
  Company Number: IT-PFIZER INC-2016325982

PATIENT
  Age: 11 Year
  Sex: Male

DRUGS (1)
  1. LINCOMYCIN HCL [Suspect]
     Active Substance: LINCOMYCIN HYDROCHLORIDE
     Indication: SURGERY
     Dosage: 1 DF (15 MG/KG), SINGLE
     Route: 042

REACTIONS (2)
  - Clostridium difficile colitis [Recovered/Resolved]
  - Arthritis reactive [Recovered/Resolved]
